FAERS Safety Report 6869271-6 (Version None)
Quarter: 2010Q3

REPORT INFORMATION
  Report Type: 
  Country: None (occurrence: None)
  Receive Date: 20100722
  Receipt Date: 20100722
  Transmission Date: 20110219
  Serious: Yes (Other)
  Sender: FDA-Public Use
  Company Number: None

PATIENT
  Sex: Female
  Weight: 127.0072 kg

DRUGS (2)
  1. ACTOS [Suspect]
     Indication: DIABETES MELLITUS
     Dosage: 30MG DAILY ORAL
     Route: 048
     Dates: start: 20090901
  2. ACTOS [Suspect]
     Indication: DIABETES MELLITUS
     Dosage: 30MG DAILY ORAL
     Route: 048
     Dates: start: 20100614

REACTIONS (1)
  - OEDEMA PERIPHERAL [None]
